FAERS Safety Report 4790383-5 (Version None)
Quarter: 2005Q4

REPORT INFORMATION
  Report Type: 
  Country: None (occurrence: None)
  Receive Date: 20051005
  Receipt Date: 20050921
  Transmission Date: 20060501
  Serious: No
  Sender: FDA-Public Use
  Company Number: 217753

PATIENT
  Age: 11 Year
  Sex: Male
  Weight: 34 kg

DRUGS (4)
  1. NUTROPIN [Suspect]
     Indication: BODY HEIGHT BELOW NORMAL
     Dosage: 2 MG, 6/WEEK, SUBCUTANEOUS
     Route: 058
     Dates: start: 20040622
  2. HYDROCORTISONE [Concomitant]
  3. L-THYROXINE (LEVOTHYROXINE SODIUM) [Concomitant]
  4. DDAVP (DESMOPRESSIN ACETATE) [Concomitant]

REACTIONS (2)
  - EXTRADURAL HAEMATOMA [None]
  - HYDROCEPHALUS [None]
